FAERS Safety Report 7787665-1 (Version None)
Quarter: 2011Q3

REPORT INFORMATION
  Report Type: 
  Country: None (occurrence: None)
  Receive Date: 20110929
  Receipt Date: 20110920
  Transmission Date: 20111222
  Serious: Yes (Life-Threatening, Hospitalization, Other)
  Sender: FDA-Public Use
  Company Number: JP-BAYER-2011-063539

PATIENT
  Age: 50 Year
  Sex: Male

DRUGS (7)
  1. VANCOMYCIN [Concomitant]
     Indication: MENINGITIS
     Dosage: 2 G, UNK
     Route: 041
     Dates: start: 20100726
  2. SEFIROM [Concomitant]
     Indication: MENINGITIS
     Dosage: 4 G, UNK
     Route: 041
     Dates: start: 20100726, end: 20100804
  3. DOPAMINE HCL [Concomitant]
     Indication: SHOCK
     Dosage: UNK
     Route: 042
     Dates: start: 20100805, end: 20100806
  4. DEXAMETHASONE SODIUM PHOSPHATE [Concomitant]
     Indication: MENINGITIS
     Dosage: 26.4 MG, UNK
     Route: 041
     Dates: start: 20100726, end: 20100729
  5. VANCOMYCIN [Concomitant]
     Dosage: UNK
     Route: 041
     Dates: start: 20100808
  6. CIPROFLOXACIN [Suspect]
     Indication: ENDOCARDITIS
     Dosage: 300 MG, BID
     Route: 041
     Dates: start: 20100809, end: 20100810
  7. MEROPENEM [Concomitant]
     Indication: ENDOCARDITIS
     Dosage: 2 G, UNK
     Route: 042
     Dates: start: 20100805, end: 20100808

REACTIONS (7)
  - AGRANULOCYTOSIS [None]
  - OEDEMA PERIPHERAL [None]
  - DERMATITIS EXFOLIATIVE [None]
  - PYREXIA [None]
  - DRUG RASH WITH EOSINOPHILIA AND SYSTEMIC SYMPTOMS [None]
  - CHILLS [None]
  - RASH [None]
